FAERS Safety Report 18282007 (Version 1)
Quarter: 2020Q3

REPORT INFORMATION
  Report Type: Spontaneous
  Country: US (occurrence: US)
  Receive Date: 20200917
  Receipt Date: 20200917
  Transmission Date: 20201103
  Serious: Yes (Hospitalization)
  Sender: FDA-Public Use
  Company Number: None

PATIENT
  Age: 74 Year
  Sex: Male
  Weight: 96.6 kg

DRUGS (11)
  1. AMLODIPINE [Concomitant]
     Active Substance: AMLODIPINE BESYLATE
  2. ATOVASTATIN [Concomitant]
     Active Substance: ATORVASTATIN
  3. BEVACIZUMAB. [Suspect]
     Active Substance: BEVACIZUMAB
     Indication: GLIOBLASTOMA MULTIFORME
     Dosage: ?          OTHER FREQUENCY:EVERY 14 DAYS;OTHER ROUTE:INFUSION?
     Dates: start: 20190821, end: 20200610
  4. EYEHEALTH MULTIVITAMIN WITH MINERALS [Concomitant]
  5. LISINOPRIL. [Concomitant]
     Active Substance: LISINOPRIL
  6. BIOMONIDINE OPTHALMIC DROPS [Concomitant]
  7. TIMOLOL OPTHALMIC DROPS [Concomitant]
  8. NAPROXEN. [Concomitant]
     Active Substance: NAPROXEN
  9. IBUPROFEN. [Concomitant]
     Active Substance: IBUPROFEN
  10. NIVOLUMAB 480 MG [Concomitant]
     Active Substance: NIVOLUMAB
     Dosage: ?          OTHER FREQUENCY:EVERY 28 DAYS;OTHER ROUTE:INFUSION?
     Dates: start: 20190821, end: 20200610
  11. ASPIRIN. [Concomitant]
     Active Substance: ASPIRIN

REACTIONS (9)
  - Encephalopathy [None]
  - Hemiparesis [None]
  - Hallucination, visual [None]
  - Muscular weakness [None]
  - Hyperglycaemia [None]
  - Hallucination [None]
  - Dysarthria [None]
  - Oedema peripheral [None]
  - Aphasia [None]

NARRATIVE: CASE EVENT DATE: 20200624
